FAERS Safety Report 8617451-1 (Version None)
Quarter: 2012Q3

REPORT INFORMATION
  Report Type: 
  Country: None (occurrence: None)
  Receive Date: 20120824
  Receipt Date: 20111024
  Transmission Date: 20120928
  Serious: No
  Sender: FDA-Public Use
  Company Number: US-ASTRAZENECA-2011SE64073

PATIENT
  Sex: Female

DRUGS (1)
  1. SYMBICORT [Suspect]
     Indication: DYSPNOEA
     Dosage: 80 MCG/4.5, 2 PUFF, BID
     Route: 055
     Dates: start: 20111001

REACTIONS (6)
  - THROAT TIGHTNESS [None]
  - DRUG INEFFECTIVE [None]
  - BLOOD CHOLESTEROL ABNORMAL [None]
  - DYSPNOEA EXERTIONAL [None]
  - BLOOD PRESSURE ABNORMAL [None]
  - DYSPHONIA [None]
